FAERS Safety Report 18258153 (Version 1)
Quarter: 2020Q3

REPORT INFORMATION
  Report Type: Spontaneous
  Country: CH (occurrence: CH)
  Receive Date: 20200911
  Receipt Date: 20200911
  Transmission Date: 20201103
  Serious: Yes (Hospitalization)
  Sender: FDA-Public Use
  Company Number: CH-GILEAD-2020-0494545

PATIENT
  Age: 80 Year
  Sex: Male
  Weight: 42 kg

DRUGS (5)
  1. FLUDEX?SR [Suspect]
     Active Substance: INDAPAMIDE
     Indication: HYPERTENSION
     Dosage: 1.5 MG, QD
     Route: 048
     Dates: end: 20200731
  2. DAPSON [Concomitant]
     Active Substance: DAPSONE
  3. CANDESARTAN HELVEPHARM [Concomitant]
  4. CRESTOR [Concomitant]
     Active Substance: ROSUVASTATIN CALCIUM
     Indication: HYPERTENSION
  5. RANEXA [Suspect]
     Active Substance: RANOLAZINE
     Indication: PRODUCT USED FOR UNKNOWN INDICATION
     Route: 065

REACTIONS (4)
  - Memory impairment [Unknown]
  - Dizziness [Unknown]
  - Hyponatraemia [Recovering/Resolving]
  - Hypoosmolar state [Unknown]
